FAERS Safety Report 18679168 (Version 10)
Quarter: 2021Q3

REPORT INFORMATION
  Report Type: Report from Study
  Country: US (occurrence: US)
  Receive Date: 20201230
  Receipt Date: 20210930
  Transmission Date: 20211014
  Serious: No
  Sender: FDA-Public Use
  Company Number: US-B.I. PHARMACEUTICALS,INC./RIDGEFIELD-2020-BI-073097

PATIENT
  Age: 70 Year
  Sex: Male

DRUGS (4)
  1. OFEV [Suspect]
     Active Substance: NINTEDANIB
     Dosage: DECIDED TO LOWER THE DOSAGE TO 100 MG FROM?CURRENT 150 MG
     Route: 048
     Dates: start: 20210121
  2. PREVACID [Concomitant]
     Active Substance: LANSOPRAZOLE
     Indication: GASTROOESOPHAGEAL REFLUX DISEASE
  3. ALKA?SELTZER [Concomitant]
     Active Substance: ANHYDROUS CITRIC ACID\ASPIRIN\SODIUM BICARBONATE
  4. OFEV [Suspect]
     Active Substance: NINTEDANIB
     Indication: IDIOPATHIC PULMONARY FIBROSIS
     Dosage: 150 BID
     Route: 048
     Dates: start: 202003

REACTIONS (11)
  - Abdominal discomfort [Unknown]
  - Vomiting [Unknown]
  - Diarrhoea [Not Recovered/Not Resolved]
  - Dizziness [Unknown]
  - Nasopharyngitis [Unknown]
  - Seasonal allergy [Unknown]
  - Epistaxis [Unknown]
  - Fatigue [Unknown]
  - Lethargy [Unknown]
  - Dyspnoea [Unknown]
  - Hypersomnia [Unknown]

NARRATIVE: CASE EVENT DATE: 202012
